FAERS Safety Report 23713443 (Version 1)
Quarter: 2024Q2

REPORT INFORMATION
  Report Type: Spontaneous
  Country: CN (occurrence: CN)
  Receive Date: 20240405
  Receipt Date: 20240405
  Transmission Date: 20240715
  Serious: Yes (Other)
  Sender: FDA-Public Use
  Company Number: CN-PFIZER INC-PV202400043985

PATIENT
  Age: 4 Year
  Sex: Male
  Weight: 16.1 kg

DRUGS (3)
  1. CYTARABINE [Suspect]
     Active Substance: CYTARABINE
     Indication: Acute megakaryocytic leukaemia
     Dosage: 2.07 G, 2X/DAY
     Route: 041
     Dates: start: 20240328, end: 20240330
  2. OMACETAXINE MEPESUCCINATE [Concomitant]
     Active Substance: OMACETAXINE MEPESUCCINATE
     Dosage: UNK
     Route: 041
     Dates: start: 20240328, end: 20240401
  3. VITAMIN B6 [Concomitant]
     Active Substance: PYRIDOXINE HYDROCHLORIDE
     Dosage: UNK
     Dates: start: 20240328, end: 20240331

REACTIONS (4)
  - Pyrexia [Recovered/Resolved]
  - Interleukin level increased [Unknown]
  - C-reactive protein increased [Recovering/Resolving]
  - Rash erythematous [Recovered/Resolved]

NARRATIVE: CASE EVENT DATE: 20240329
